FAERS Safety Report 5510555-1 (Version None)
Quarter: 2007Q4

REPORT INFORMATION
  Report Type: 
  Country: None (occurrence: None)
  Receive Date: 20071108
  Receipt Date: 20071031
  Transmission Date: 20080405
  Serious: Yes (Hospitalization, Other)
  Sender: FDA-Public Use
  Company Number: US-ELI_LILLY_AND_COMPANY-US200710002034

PATIENT
  Sex: Male

DRUGS (8)
  1. HUMATROPE [Suspect]
     Indication: BRAIN NEOPLASM
     Dosage: 0.3 MG, DAILY (1/D)
     Dates: start: 19980201
  2. HYDROCORTISONE [Concomitant]
     Indication: HORMONE REPLACEMENT THERAPY
     Dosage: 20 MG, EACH MORNING
  3. HYDROCORTISONE [Concomitant]
     Dosage: 10 MG, EACH EVENING
  4. DELATESTRYL [Concomitant]
     Indication: HORMONE REPLACEMENT THERAPY
     Dosage: 100 MG, WEEKLY (1/W)
     Route: 030
  5. PARLODEL [Concomitant]
     Indication: HORMONE REPLACEMENT THERAPY
     Dosage: 10 MG, EACH MORNING
  6. PARLODEL [Concomitant]
     Dosage: 15 MG, EACH EVENING
  7. LEVOTHYROXINE SODIUM [Concomitant]
     Indication: HORMONE REPLACEMENT THERAPY
     Dosage: 0.2 MG, DAILY (1/D)
  8. FLUDROCORTISONE ACETATE [Concomitant]
     Indication: HORMONE REPLACEMENT THERAPY
     Dosage: 0.2 MG, DAILY (1/D)

REACTIONS (4)
  - HYPOAESTHESIA FACIAL [None]
  - NERVE INJURY [None]
  - PITUITARY TUMOUR BENIGN [None]
  - VISUAL ACUITY REDUCED [None]
